FAERS Safety Report 10906012 (Version 1)
Quarter: 2015Q1

REPORT INFORMATION
  Report Type: Spontaneous
  Country: US (occurrence: US)
  Receive Date: 20150311
  Receipt Date: 20150311
  Transmission Date: 20150721
  Serious: Yes (Other)
  Sender: FDA-Public Use
  Company Number: US-DSJP-DSU-2015-107317

PATIENT

DRUGS (1)
  1. AZOR [Suspect]
     Active Substance: AMLODIPINE BESYLATE\OLMESARTAN MEDOXOMIL
     Indication: PRODUCT USED FOR UNKNOWN INDICATION
     Dosage: 5/40 MG, SINGLE
     Dates: start: 201503, end: 201503

REACTIONS (5)
  - No adverse event [Recovered/Resolved]
  - Loss of consciousness [Recovered/Resolved]
  - Drug administration error [Recovered/Resolved]
  - Hypotension [Unknown]
  - Joint injury [Unknown]

NARRATIVE: CASE EVENT DATE: 2015
